FAERS Safety Report 4396909-8 (Version None)
Quarter: 2004Q3

REPORT INFORMATION
  Report Type: 
  Country: None (occurrence: None)
  Receive Date: 20040708
  Receipt Date: 20040701
  Transmission Date: 20050211
  Serious: Yes (Life-Threatening, Hospitalization)
  Sender: FDA-Public Use
  Company Number: 2004PK01123

PATIENT
  Age: 68 Year
  Sex: Male
  Weight: 93 kg

DRUGS (8)
  1. METOPROLOL SUCCINATE [Suspect]
     Indication: HYPERTENSION
     Dosage: 23.75 MG DAILY PO
     Route: 048
     Dates: start: 20030601
  2. ACTRAPID HUMAN [Suspect]
     Indication: DIABETES MELLITUS INSULIN-DEPENDENT
     Dosage: 32 IU DAILY SQ
     Route: 058
     Dates: start: 19980101
  3. ACTRAPID HUMAN [Suspect]
     Indication: DIABETES MELLITUS INSULIN-DEPENDENT
     Dosage: 24 IU DAILY SQ
     Route: 058
  4. DELIX [Suspect]
     Indication: HYPERTENSION
     Dosage: 5 MG BID PO
     Route: 048
     Dates: start: 20000101
  5. PROTAPHAN [Suspect]
     Indication: DIABETES MELLITUS INSULIN-DEPENDENT
     Dosage: 22 IU DAILY SQ
     Route: 058
     Dates: start: 19980101
  6. PROTAPHAN [Suspect]
     Indication: DIABETES MELLITUS INSULIN-DEPENDENT
     Dosage: 20 IU DAILY SQ
     Route: 058
  7. ASPIRIN [Concomitant]
  8. TEGRETOL-XR [Concomitant]

REACTIONS (5)
  - COMA [None]
  - DRUG INTERACTION [None]
  - HYPERHIDROSIS [None]
  - MARKEDLY REDUCED DIETARY INTAKE [None]
  - SHOCK HYPOGLYCAEMIC [None]
